FAERS Safety Report 13579536 (Version 2)
Quarter: 2017Q3

REPORT INFORMATION
  Report Type: Report from Study
  Country: None (occurrence: US)
  Receive Date: 20170525
  Receipt Date: 20170804
  Transmission Date: 20171127
  Serious: Yes (Other)
  Sender: FDA-Public Use
  Company Number: US-ABBVIE-17K-163-1984760-00

PATIENT
  Age: 37 Year
  Sex: Female

DRUGS (2)
  1. HUMIRA [Suspect]
     Active Substance: ADALIMUMAB
     Indication: CROHN^S DISEASE
     Route: 058
  2. HUMIRA [Suspect]
     Active Substance: ADALIMUMAB
     Route: 058

REACTIONS (6)
  - Subcutaneous abscess [Unknown]
  - Crohn^s disease [Unknown]
  - Gastrointestinal obstruction [Unknown]
  - Nasopharyngitis [Unknown]
  - Impaired healing [Unknown]
  - Malaise [Unknown]

NARRATIVE: CASE EVENT DATE: 2017
